FAERS Safety Report 24779488 (Version 1)
Quarter: 2024Q4

REPORT INFORMATION
  Report Type: Spontaneous
  Country: US (occurrence: US)
  Receive Date: 20241226
  Receipt Date: 20241226
  Transmission Date: 20250115
  Serious: Yes (Other)
  Sender: PURDUE
  Company Number: US-PURDUE PHARMA-USA-2024-0314274

PATIENT
  Age: 52 Year
  Sex: Male

DRUGS (3)
  1. OXYCODONE HYDROCHLORIDE [Suspect]
     Active Substance: OXYCODONE HYDROCHLORIDE
     Indication: Product used for unknown indication
     Dosage: JUNE 25, 8 PILLS; JUNE 27, 8 PILLS; JUNE 29, 6 PILLS; JUNE 30, 3; JULY 1, 12; JULY 2, AN UNKNOWN NUM
     Route: 065
     Dates: start: 20220624, end: 20221128
  2. DEXTROAMPHETAMINE SACCHARATE, AMPHETAMINE ASPARTATE, DEXTROAMPHETAMINE [Suspect]
     Active Substance: AMPHETAMINE ASPARTATE\AMPHETAMINE SULFATE\DEXTROAMPHETAMINE SACCHARATE\DEXTROAMPHETAMINE SULFATE
     Indication: Product used for unknown indication
     Dosage: UNK
     Route: 065
     Dates: start: 2018
  3. FENTANYL [Suspect]
     Active Substance: FENTANYL
     Indication: Product used for unknown indication
     Dosage: JUNE 25, 8 PILLS; JUNE 27, 8 PILLS; JUNE 29, 6 PILLS; JUNE 30, 3; JULY 1, 12; JULY 2, AN UNKNOWN NUM
     Route: 065
     Dates: start: 20220624, end: 20221128

REACTIONS (4)
  - Drug dependence [Unknown]
  - Drug diversion [Unknown]
  - Homicide [Unknown]
  - Product counterfeit [Unknown]

NARRATIVE: CASE EVENT DATE: 20220101
